FAERS Safety Report 8134352-6 (Version None)
Quarter: 2012Q1

REPORT INFORMATION
  Report Type: 
  Country: None (occurrence: None)
  Receive Date: 20120209
  Receipt Date: 20120203
  Transmission Date: 20120608
  Serious: Yes (Hospitalization)
  Sender: FDA-Public Use
  Company Number: IMP_05735_2012

PATIENT
  Age: 36 Year
  Sex: Female

DRUGS (3)
  1. DIAZEPAM [Suspect]
     Indication: AGITATION
     Dosage: 30 MG QD
  2. OLANZAPINE [Suspect]
     Indication: PSYCHOTIC DISORDER
     Dosage: 10 MG QD (20 MG QD)
  3. DIVALPROEX (DIVALPRIEX) (NOT SPECIFIED) [Suspect]
     Indication: MANIA
     Dosage: 1000 MG QD, (1500 MG QD)

REACTIONS (2)
  - MANIA [None]
  - ENCEPHALOPATHY [None]
